FAERS Safety Report 11576888 (Version 1)
Quarter: 2015Q3

REPORT INFORMATION
  Report Type: Spontaneous
  Country: CN (occurrence: CN)
  Receive Date: 20150930
  Receipt Date: 20150930
  Transmission Date: 20151125
  Serious: Yes (Hospitalization)
  Sender: FDA-Public Use
  Company Number: CN-BAYER-2015-427211

PATIENT
  Age: 45 Year
  Sex: Female

DRUGS (3)
  1. MONTELUKAST [Concomitant]
     Active Substance: MONTELUKAST SODIUM
     Indication: RHINITIS ALLERGIC
  2. MONTELUKAST [Concomitant]
     Active Substance: MONTELUKAST SODIUM
     Indication: URTICARIA CHRONIC
  3. MOXIFLOXACIN ORAL [Suspect]
     Active Substance: MOXIFLOXACIN
     Indication: BRONCHITIS
     Dosage: 0.4 G, UNK
     Route: 048
     Dates: start: 20140311

REACTIONS (12)
  - Dysphonia [Recovering/Resolving]
  - Vomiting [Recovering/Resolving]
  - Loss of consciousness [Recovering/Resolving]
  - Visual impairment [Recovering/Resolving]
  - Diarrhoea [Recovering/Resolving]
  - Intentional product misuse [Recovering/Resolving]
  - Pruritus [Recovering/Resolving]
  - Erythema [Recovering/Resolving]
  - Face oedema [Recovering/Resolving]
  - Vaginal haemorrhage [Recovered/Resolved]
  - Abdominal pain [Recovering/Resolving]
  - Drug hypersensitivity [Recovering/Resolving]

NARRATIVE: CASE EVENT DATE: 20140311
